FAERS Safety Report 10289698 (Version 1)
Quarter: 2014Q3

REPORT INFORMATION
  Report Type: Spontaneous
  Country: US (occurrence: None)
  Receive Date: 20140707
  Receipt Date: 20140707
  Transmission Date: 20150326
  Serious: Yes (Disabling)
  Sender: FDA-Public Use
  Company Number: None

PATIENT
  Age: 37 Year
  Sex: Female
  Weight: 68.04 kg

DRUGS (1)
  1. DEXTROAMPHETAMINE [Suspect]
     Active Substance: DEXTROAMPHETAMINE
     Indication: ATTENTION DEFICIT/HYPERACTIVITY DISORDER
     Dosage: 1 PILL, THREE TIMES DAILY, TAKEN BY MOUTH
     Route: 048
     Dates: start: 20140701, end: 20130703

REACTIONS (3)
  - Dysarthria [None]
  - Product label issue [None]
  - Gait disturbance [None]

NARRATIVE: CASE EVENT DATE: 20140701
